FAERS Safety Report 5528413-5 (Version None)
Quarter: 2007Q4

REPORT INFORMATION
  Report Type: 
  Country: None (occurrence: None)
  Receive Date: 20071123
  Receipt Date: 20071113
  Transmission Date: 20080405
  Serious: Yes (Hospitalization)
  Sender: FDA-Public Use
  Company Number: 2007-05105

PATIENT
  Age: 65 Year
  Sex: Female

DRUGS (3)
  1. FORTAMET [Suspect]
     Indication: TYPE 2 DIABETES MELLITUS
     Dosage: 500 MG, BID
     Dates: start: 19980101, end: 20040625
  2. GLYBURIDE [Concomitant]
  3. PYRIDOSTIGMINE (PYRIDOSTIGMINE) [Concomitant]

REACTIONS (4)
  - ANAEMIA MEGALOBLASTIC [None]
  - DEEP VEIN THROMBOSIS [None]
  - HYPERHOMOCYSTEINAEMIA [None]
  - VITAMIN B12 DEFICIENCY [None]
